FAERS Safety Report 24991418 (Version 1)
Quarter: 2025Q1

REPORT INFORMATION
  Report Type: Report from Study
  Country: US (occurrence: US)
  Receive Date: 20250220
  Receipt Date: 20250220
  Transmission Date: 20250408
  Serious: Yes (Hospitalization, Other)
  Sender: NOVARTIS
  Company Number: US-002147023-NVSC2025US013826

PATIENT

DRUGS (1)
  1. KESIMPTA [Suspect]
     Active Substance: OFATUMUMAB
     Indication: Relapsing multiple sclerosis
     Route: 065

REACTIONS (6)
  - Symptom recurrence [Unknown]
  - Multiple sclerosis [Recovered/Resolved]
  - Paraesthesia [Recovered/Resolved]
  - Sinus disorder [Unknown]
  - Epistaxis [Unknown]
  - Chills [Unknown]
